FAERS Safety Report 16427691 (Version 2)
Quarter: 2019Q2

REPORT INFORMATION
  Report Type: Spontaneous
  Country: JP (occurrence: JP)
  Receive Date: 20190613
  Receipt Date: 20190621
  Transmission Date: 20190711
  Serious: Yes (Hospitalization)
  Sender: FDA-Public Use
  Company Number: JP-ASTRAZENECA-2019SE85896

PATIENT
  Age: 85 Year
  Sex: Male

DRUGS (2)
  1. PULMICORT TURBUHALER [Suspect]
     Active Substance: BUDESONIDE
     Indication: EOSINOPHILIC OESOPHAGITIS
     Route: 055
     Dates: start: 20180531
  2. PULMICORT TURBUHALER [Suspect]
     Active Substance: BUDESONIDE
     Indication: EOSINOPHILIC OESOPHAGITIS
     Route: 055
     Dates: start: 20170901, end: 20180530

REACTIONS (2)
  - Cytomegalovirus oesophagitis [Recovered/Resolved]
  - Off label use [Unknown]

NARRATIVE: CASE EVENT DATE: 20180531
